FAERS Safety Report 23781165 (Version 2)
Quarter: 2024Q2

REPORT INFORMATION
  Report Type: Report from Study
  Country: CA (occurrence: CA)
  Receive Date: 20240425
  Receipt Date: 20240531
  Transmission Date: 20240715
  Serious: Yes (Hospitalization, Disabling, Other)
  Sender: FDA-Public Use
  Company Number: CA-BoehringerIngelheim-2020-BI-029222

PATIENT
  Age: 54 Year
  Sex: Female

DRUGS (1)
  1. OFEV [Suspect]
     Active Substance: NINTEDANIB
     Indication: Idiopathic pulmonary fibrosis
     Route: 048
     Dates: start: 20200604

REACTIONS (15)
  - Leg amputation [Recovering/Resolving]
  - Diabetes mellitus [Unknown]
  - Diabetic foot [Unknown]
  - Necrotising fasciitis [Unknown]
  - Hepatic enzyme increased [Unknown]
  - Illness [Recovered/Resolved]
  - Tooth extraction [Recovered/Resolved]
  - Diarrhoea [Recovered/Resolved]
  - Respiration abnormal [Recovered/Resolved]
  - Fatigue [Not Recovered/Not Resolved]
  - Nausea [Recovered/Resolved]
  - Abdominal discomfort [Recovered/Resolved]
  - Dyspnoea [Recovered/Resolved]
  - Productive cough [Not Recovered/Not Resolved]
  - Dyspnoea [Not Recovered/Not Resolved]

NARRATIVE: CASE EVENT DATE: 20200101
